FAERS Safety Report 16119380 (Version 1)
Quarter: 2019Q1

REPORT INFORMATION
  Report Type: Spontaneous
  Country: MY (occurrence: MY)
  Receive Date: 20190326
  Receipt Date: 20190326
  Transmission Date: 20190418
  Serious: Yes (Other)
  Sender: FDA-Public Use
  Company Number: MY-JAZZ-2019-MY-004018

PATIENT
  Sex: Male

DRUGS (1)
  1. DEFIBROTIDE (NPB) [Suspect]
     Active Substance: DEFIBROTIDE SODIUM
     Indication: PROPHYLAXIS
     Dosage: UNKNOWN DOSE

REACTIONS (4)
  - Condition aggravated [Unknown]
  - Platelet count decreased [Unknown]
  - Stomatitis [Unknown]
  - Mouth haemorrhage [Unknown]
